FAERS Safety Report 25474379 (Version 1)
Quarter: 2025Q2

REPORT INFORMATION
  Report Type: Spontaneous
  Country: JP (occurrence: JP)
  Receive Date: 20250624
  Receipt Date: 20250624
  Transmission Date: 20250716
  Serious: Yes (Other)
  Sender: JOHNSON AND JOHNSON
  Company Number: JP-JNJFOC-20250616553

PATIENT
  Age: 8 Decade
  Sex: Female

DRUGS (3)
  1. LAZCLUZE [Suspect]
     Active Substance: LAZERTINIB
     Indication: Product used for unknown indication
     Route: 048
     Dates: start: 20250609, end: 202506
  2. RYBREVANT [Suspect]
     Active Substance: AMIVANTAMAB-VMJW
     Indication: Product used for unknown indication
     Route: 042
     Dates: start: 20250609, end: 20250609
  3. RYBREVANT [Suspect]
     Active Substance: AMIVANTAMAB-VMJW
     Route: 042
     Dates: start: 20250610, end: 20250610

REACTIONS (4)
  - Delirium [Unknown]
  - Femur fracture [Unknown]
  - Fall [Unknown]
  - Off label use [Unknown]

NARRATIVE: CASE EVENT DATE: 20250601
